FAERS Safety Report 6083026-4 (Version None)
Quarter: 2009Q1

REPORT INFORMATION
  Report Type: 
  Country: None (occurrence: None)
  Receive Date: 20090218
  Receipt Date: 20090206
  Transmission Date: 20090719
  Serious: Yes (Other)
  Sender: FDA-Public Use
  Company Number: GB-AMGEN-US330633

PATIENT
  Sex: Female
  Weight: 31.8 kg

DRUGS (2)
  1. ENBREL [Suspect]
     Indication: JUVENILE ARTHRITIS
     Route: 058
     Dates: start: 20070130
  2. PIRITON [Concomitant]
     Dosage: 2 MG EVERY 1 PRN
     Route: 048
     Dates: start: 20070301

REACTIONS (2)
  - ARTHRITIS [None]
  - CONDITION AGGRAVATED [None]
